FAERS Safety Report 10005176 (Version 2)
Quarter: 2014Q2

REPORT INFORMATION
  Report Type: Spontaneous
  Country: US (occurrence: US)
  Receive Date: 20140312
  Receipt Date: 20140430
  Transmission Date: 20141212
  Serious: Yes (Other)
  Sender: FDA-Public Use
  Company Number: US-TEVA-467860USA

PATIENT
  Age: 65 Year
  Sex: Female

DRUGS (2)
  1. PROAIR HFA [Suspect]
     Indication: CHRONIC OBSTRUCTIVE PULMONARY DISEASE
     Dosage: (ILLEGIBLE) PUFFS, 1 TO 2 TIMES DAILY
  2. INFLUENZA VACCINE [Suspect]
     Dates: start: 20130911

REACTIONS (9)
  - Fall [Unknown]
  - Spinal compression fracture [Unknown]
  - Spinal fracture [Unknown]
  - Ventricular extrasystoles [Unknown]
  - Heart rate decreased [Unknown]
  - Weight increased [Unknown]
  - Restless legs syndrome [Unknown]
  - Blood potassium decreased [Unknown]
  - Muscle spasms [Unknown]
